FAERS Safety Report 14798668 (Version 1)
Quarter: 2018Q2

REPORT INFORMATION
  Report Type: Spontaneous
  Country: DE (occurrence: DE)
  Receive Date: 20180424
  Receipt Date: 20180424
  Transmission Date: 20180711
  Serious: Yes (Other)
  Sender: FDA-Public Use
  Company Number: DE-ALLERGAN-1822367US

PATIENT
  Age: 52 Year
  Sex: Female

DRUGS (3)
  1. ESCITALOPRAM OXALATE - BP [Suspect]
     Active Substance: ESCITALOPRAM OXALATE
     Indication: PANIC DISORDER
     Dosage: 20 MG, QD
     Route: 048
     Dates: start: 2003
  2. ESCITALOPRAM OXALATE - BP [Suspect]
     Active Substance: ESCITALOPRAM OXALATE
     Indication: AGORAPHOBIA
  3. TAXILAN (PERAZINE DIMALONATE) [Suspect]
     Active Substance: PERAZINE DIMALONATE
     Indication: ADVERSE DRUG REACTION
     Dosage: 250 MG, QD
     Route: 048
     Dates: start: 2003

REACTIONS (6)
  - Hyperphagia [Unknown]
  - Weight increased [Unknown]
  - Insomnia [Unknown]
  - Off label use [Unknown]
  - Binge eating [Unknown]
  - Gastrectomy [Unknown]

NARRATIVE: CASE EVENT DATE: 2015
